FAERS Safety Report 15587101 (Version 1)
Quarter: 2018Q4

REPORT INFORMATION
  Report Type: Spontaneous
  Country: US (occurrence: US)
  Receive Date: 20181106
  Receipt Date: 20181106
  Transmission Date: 20190205
  Serious: Yes (Death)
  Sender: FDA-Public Use
  Company Number: None

PATIENT
  Age: 52 Year
  Sex: Male

DRUGS (3)
  1. NONE LISTED [Concomitant]
  2. TEMOZOLOMIDE. [Suspect]
     Active Substance: TEMOZOLOMIDE
     Indication: MALIGNANT MELANOMA
     Dosage: ?          OTHER FREQUENCY:DAILY X 5 DAYS;?
     Route: 048
     Dates: start: 20181006
  3. TEMOZOLOMIDE. [Suspect]
     Active Substance: TEMOZOLOMIDE
     Indication: MALIGNANT MELANOMA
     Dosage: ?          OTHER FREQUENCY:DAILY X 5 DAYS;?
     Route: 048
     Dates: start: 20181006

REACTIONS (1)
  - Death [None]

NARRATIVE: CASE EVENT DATE: 20181101
